FAERS Safety Report 4586612-3 (Version None)
Quarter: 2005Q1

REPORT INFORMATION
  Report Type: 
  Country: None (occurrence: None)
  Receive Date: 20050218
  Receipt Date: 20040701
  Transmission Date: 20050727
  Serious: No
  Sender: FDA-Public Use
  Company Number: US-BRISTOL-MYERS SQUIBB COMPANY-12637278

PATIENT
  Age: 55 Year
  Sex: Female

DRUGS (5)
  1. TAXOL [Suspect]
     Indication: BREAST CANCER
     Dosage: INITIAL DOSE: 11-JUN-2004
     Route: 042
     Dates: start: 20040618, end: 20040618
  2. ZOFRAN [Concomitant]
  3. DECADRON [Concomitant]
  4. TAGAMET [Concomitant]
  5. BENADRYL [Concomitant]

REACTIONS (2)
  - DYSPEPSIA [None]
  - FLUSHING [None]
